FAERS Safety Report 7519169-5 (Version None)
Quarter: 2011Q2

REPORT INFORMATION
  Report Type: 
  Country: None (occurrence: None)
  Receive Date: 20110602
  Receipt Date: 20090201
  Transmission Date: 20111010
  Serious: Yes (Hospitalization, Other)
  Sender: FDA-Public Use
  Company Number: US-BAYER-200911993NA

PATIENT
  Age: 61 Year
  Sex: Male
  Weight: 81 kg

DRUGS (33)
  1. MAGNESIUM SULFATE [Concomitant]
     Dosage: UNK
     Dates: start: 20060915
  2. IMDUR [Concomitant]
  3. NATRECOR [Concomitant]
     Dosage: UNK
     Dates: start: 20060915
  4. EPINEPHRINE [Concomitant]
     Dosage: UNK
     Dates: start: 20060915
  5. PLATELETS [Concomitant]
     Dosage: 4 U, UNK
     Dates: start: 20060915
  6. DIOVAN [Concomitant]
  7. PRILOSEC [Concomitant]
  8. RED BLOOD CELLS [Concomitant]
     Dosage: 3 U, UNK
     Dates: start: 20060915
  9. TRASYLOL [Suspect]
     Indication: MITRAL VALVE REPAIR
     Dosage: 200 ML, UNK, LOADING DOSE
     Route: 042
     Dates: start: 20060915, end: 20060915
  10. COREG [Concomitant]
  11. AMIODARONE HCL [Concomitant]
  12. HEPARIN [Concomitant]
     Dosage: UNK
     Dates: start: 20060914
  13. SODIUM NITROPRUSSIDE [Concomitant]
     Dosage: 0.2/MCG/MG/MIN, UNK
     Dates: start: 20060915
  14. INSULIN [Concomitant]
     Dosage: UNK
     Dates: start: 20060915
  15. MEXILETINE HYDROCHLORIDE [Concomitant]
  16. HEPARIN [Concomitant]
     Dosage: 1000 U, Q1HR
     Dates: start: 20050915
  17. MANNITOL [Concomitant]
     Dosage: UNK
     Dates: start: 20060915
  18. PLASMA [Concomitant]
     Dosage: 8 U, UNK
     Dates: start: 20060915
  19. TRASYLOL [Suspect]
     Indication: CARDIAC OPERATION
     Dosage: 50 ML, Q1HR
     Route: 042
     Dates: start: 20060915, end: 20060915
  20. METOPROLOL TARTRATE [Concomitant]
     Dosage: UNK
     Dates: start: 20060911
  21. PANCURONIUM BROMIDE [Concomitant]
     Dosage: UNK
     Dates: start: 20060915
  22. DIGOXIN [Concomitant]
     Dosage: UNK
     Dates: start: 20060915
  23. LANOXIN [Concomitant]
  24. LIPITOR [Concomitant]
  25. ACETYLSALICYLIC ACID SRT [Concomitant]
  26. VANCOMYCIN [Concomitant]
     Dosage: 1 G, UNK
     Dates: start: 20060915
  27. DICLOFENAC SODIUM [Concomitant]
     Dosage: UNK
     Dates: start: 20060911
  28. LASIX [Concomitant]
  29. MILRINONE [Concomitant]
     Dosage: UNK
     Dates: start: 20060914
  30. MILRINONE [Concomitant]
     Dosage: 0.5 MCG/MG/MIN, UNK
     Dates: start: 20060915
  31. GENTAMYCIN SULFATE [Concomitant]
     Dosage: UNK
     Dates: start: 20060914
  32. GENTAMYCIN SULFATE [Concomitant]
     Dosage: 80 MG, UNK
     Dates: start: 20060915
  33. VANCOMYCIN [Concomitant]
     Dosage: UNK
     Dates: start: 20060914

REACTIONS (10)
  - INJURY [None]
  - HEMIPARESIS [None]
  - PAIN [None]
  - CEREBROVASCULAR ACCIDENT [None]
  - STRESS [None]
  - UNEVALUABLE EVENT [None]
  - ANHEDONIA [None]
  - EMOTIONAL DISTRESS [None]
  - ANXIETY [None]
  - FEAR [None]
